FAERS Safety Report 9632781 (Version 2)
Quarter: 2013Q4

REPORT INFORMATION
  Report Type: Spontaneous
  Country: US (occurrence: US)
  Receive Date: 20131018
  Receipt Date: 20131018
  Transmission Date: 20140711
  Serious: No
  Sender: FDA-Public Use
  Company Number: US-ASTRAZENECA-2013SE49914

PATIENT
  Sex: Male
  Weight: 77.1 kg

DRUGS (3)
  1. CRESTOR [Suspect]
     Indication: BLOOD CHOLESTEROL ABNORMAL
     Route: 048
  2. ZYRTEC [Concomitant]
     Indication: SINUS DISORDER
  3. SINGULAIR [Concomitant]
     Indication: LUNG DISORDER

REACTIONS (3)
  - Reading disorder [Unknown]
  - Seasonal allergy [Unknown]
  - Muscle spasms [Unknown]
